FAERS Safety Report 4820555-2 (Version None)
Quarter: 2005Q4

REPORT INFORMATION
  Report Type: 
  Country: None (occurrence: None)
  Receive Date: 20051104
  Receipt Date: 20051025
  Transmission Date: 20060501
  Serious: Yes (Other)
  Sender: FDA-Public Use
  Company Number: LV-BRISTOL-MYERS SQUIBB COMPANY-13164066

PATIENT
  Age: 29 Year
  Sex: Female

DRUGS (1)
  1. STOCRIN TABS 600 MG [Suspect]
     Route: 048
     Dates: start: 20051014, end: 20051014

REACTIONS (8)
  - COORDINATION ABNORMAL [None]
  - DIZZINESS [None]
  - DRUG ABUSER [None]
  - HEADACHE [None]
  - INTENTIONAL DRUG MISUSE [None]
  - MOVEMENT DISORDER [None]
  - OVERDOSE [None]
  - THIRST [None]
